FAERS Safety Report 25181980 (Version 3)
Quarter: 2025Q3

REPORT INFORMATION
  Report Type: Report from Study
  Country: US (occurrence: US)
  Receive Date: 20250410
  Receipt Date: 20250807
  Transmission Date: 20251020
  Serious: Yes (Hospitalization, Other)
  Sender: ALEXION PHARMACEUTICALS
  Company Number: US-AstraZeneca-CH-00842033A

PATIENT
  Sex: Female

DRUGS (1)
  1. ULTOMIRIS [Suspect]
     Active Substance: RAVULIZUMAB-CWVZ
     Indication: Atypical haemolytic uraemic syndrome
     Route: 065

REACTIONS (16)
  - Hallucination, auditory [Unknown]
  - Blindness [Unknown]
  - Loss of consciousness [Unknown]
  - Blood glucose decreased [Unknown]
  - Decreased appetite [Unknown]
  - Gait disturbance [Unknown]
  - Thyroid disorder [Unknown]
  - Cardiac disorder [Unknown]
  - Ear pain [Unknown]
  - Mood swings [Unknown]
  - Vomiting [Unknown]
  - Swelling [Unknown]
  - Astigmatism [Unknown]
  - Poor venous access [Unknown]
  - Hypersensitivity [Unknown]
  - Pruritus [Unknown]
